FAERS Safety Report 20727294 (Version 6)
Quarter: 2022Q2

REPORT INFORMATION
  Report Type: Report from Study
  Country: ES (occurrence: None)
  Receive Date: 20220419
  Receipt Date: 20220608
  Transmission Date: 20220721
  Serious: Yes (Hospitalization)
  Sender: FDA-Public Use
  Company Number: ES-ROCHE-3072995

PATIENT
  Age: 86 Year
  Sex: Male
  Weight: 77.3 kg

DRUGS (50)
  1. MOSUNETUZUMAB [Suspect]
     Active Substance: MOSUNETUZUMAB
     Indication: Diffuse large B-cell lymphoma
     Dosage: ON 24/MAR/2022 AT 2:15 PM, RECEIVED MOST RECENT DOSE (45 MG) OF STUDY DRUG PRIOR TO SERIOUS ADVERSE
     Route: 058
     Dates: start: 20220210
  2. POLATUZUMAB VEDOTIN [Suspect]
     Active Substance: POLATUZUMAB VEDOTIN
     Indication: Diffuse large B-cell lymphoma
     Dosage: ON 24/MAR/2022, RECEIVED MOST RECENT DOSE (135 MG) OF STUDY DRUG PRIOR TO SERIOUS ADVERSE EVENT (SAE
     Route: 042
     Dates: start: 20220210
  3. ORALDINE [Concomitant]
     Route: 048
     Dates: start: 20220202
  4. MYCOSTATIN [Concomitant]
     Active Substance: NYSTATIN
     Route: 048
     Dates: start: 20220202
  5. ALLOPURINOL [Concomitant]
     Active Substance: ALLOPURINOL
     Route: 048
     Dates: start: 20220202
  6. FAMOTIDINE [Concomitant]
     Active Substance: FAMOTIDINE
     Dosage: 1 TABLET
     Route: 048
     Dates: start: 20220202
  7. ASPIRIN [Concomitant]
     Active Substance: ASPIRIN
     Route: 048
     Dates: start: 20220202
  8. SERTRALINE [Concomitant]
     Active Substance: SERTRALINE HYDROCHLORIDE
     Route: 048
     Dates: start: 20220202
  9. VALSARTAN [Concomitant]
     Active Substance: VALSARTAN
     Route: 048
     Dates: start: 2020
  10. VALSARTAN [Concomitant]
     Active Substance: VALSARTAN
     Route: 048
     Dates: start: 20220512
  11. SYMBICORT [Concomitant]
     Active Substance: BUDESONIDE\FORMOTEROL FUMARATE DIHYDRATE
     Dosage: 1 INHALATION
     Route: 055
     Dates: start: 2020, end: 20220406
  12. IPRATROPIUM BROMIDE [Concomitant]
     Active Substance: IPRATROPIUM BROMIDE
     Dosage: 1 INHALATION
     Route: 055
     Dates: start: 2020
  13. DEXTROSE\SODIUM CHLORIDE [Concomitant]
     Active Substance: DEXTROSE\SODIUM CHLORIDE
     Route: 042
     Dates: start: 20220209
  14. FUROSEMIDE [Concomitant]
     Active Substance: FUROSEMIDE
     Route: 048
     Dates: start: 20220207
  15. SULFAMETHOXAZOLE\TRIMETHOPRIM [Concomitant]
     Active Substance: SULFAMETHOXAZOLE\TRIMETHOPRIM
     Route: 048
     Dates: start: 20220209, end: 20220406
  16. SULFAMETHOXAZOLE\TRIMETHOPRIM [Concomitant]
     Active Substance: SULFAMETHOXAZOLE\TRIMETHOPRIM
     Route: 048
     Dates: start: 20220412
  17. ACYCLOVIR [Concomitant]
     Active Substance: ACYCLOVIR
     Route: 048
     Dates: start: 20220208, end: 20220406
  18. ACYCLOVIR [Concomitant]
     Active Substance: ACYCLOVIR
     Route: 048
     Dates: start: 20220412
  19. GRANISETRON [Concomitant]
     Active Substance: GRANISETRON
     Route: 042
     Dates: start: 20220210
  20. DEXAMETHASONE [Concomitant]
     Active Substance: DEXAMETHASONE
     Route: 042
     Dates: start: 20220210
  21. FORADIL [Concomitant]
     Active Substance: FORMOTEROL FUMARATE
     Dosage: 4 PUFF
     Route: 055
     Dates: start: 2020, end: 20220406
  22. MAYGACE [Concomitant]
     Dosage: 1 TABLET
     Route: 048
     Dates: start: 20220303
  23. CHLORHEXIDINE [Concomitant]
     Active Substance: CHLORHEXIDINE
     Dosage: 1 OTHER
     Route: 061
  24. NYSTATIN [Concomitant]
     Active Substance: NYSTATIN
     Dosage: 1 OTHER
     Route: 061
  25. ALLOPURINOL [Concomitant]
     Active Substance: ALLOPURINOL
     Dates: start: 20220202, end: 20220406
  26. ALLOPURINOL [Concomitant]
     Active Substance: ALLOPURINOL
     Dates: start: 20220418
  27. LORAZEPAM [Concomitant]
     Active Substance: LORAZEPAM
     Dates: start: 20220202, end: 20220406
  28. MEGESTROL [Concomitant]
     Active Substance: MEGESTROL
     Route: 048
     Dates: start: 20220303, end: 20220418
  29. DEXTROSE [Concomitant]
     Active Substance: DEXTROSE
     Route: 042
     Dates: start: 20220406, end: 20220420
  30. SODIUM CHLORIDE [Concomitant]
     Active Substance: SODIUM CHLORIDE
     Route: 042
     Dates: start: 20220406, end: 20220420
  31. SODIUM CHLORIDE [Concomitant]
     Active Substance: SODIUM CHLORIDE
     Route: 042
     Dates: start: 20220406, end: 20220407
  32. KABIVEN [Concomitant]
     Active Substance: AMINO ACIDS\ANHYDROUS DEXTROSE\CALCIUM CHLORIDE\MAGNESIUM SULFATE HEPTAHYDRATE\POTASSIUM CHLORIDE\SO
     Route: 042
     Dates: start: 20220406, end: 20220412
  33. KABIVEN [Concomitant]
     Active Substance: AMINO ACIDS\ANHYDROUS DEXTROSE\CALCIUM CHLORIDE\MAGNESIUM SULFATE HEPTAHYDRATE\POTASSIUM CHLORIDE\SO
     Route: 042
     Dates: start: 20220412, end: 20220418
  34. ACYCLOVIR [Concomitant]
     Active Substance: ACYCLOVIR
     Route: 048
     Dates: start: 20220406, end: 20220412
  35. TENOFOVIR [Concomitant]
     Active Substance: TENOFOVIR
     Route: 048
     Dates: start: 20220212, end: 20220406
  36. TENOFOVIR [Concomitant]
     Active Substance: TENOFOVIR
     Route: 048
     Dates: start: 20220406, end: 20220408
  37. TENOFOVIR [Concomitant]
     Active Substance: TENOFOVIR
     Route: 048
     Dates: start: 20220408, end: 20220412
  38. TENOFOVIR [Concomitant]
     Active Substance: TENOFOVIR
     Route: 048
     Dates: start: 20220412
  39. PIPERACILLIN SODIUM\TAZOBACTAM SODIUM [Concomitant]
     Active Substance: PIPERACILLIN SODIUM\TAZOBACTAM SODIUM
     Route: 042
     Dates: start: 20220406, end: 20220412
  40. SODIUM BICARBONATE [Concomitant]
     Active Substance: SODIUM BICARBONATE
     Dosage: 1 AMPULE
     Route: 042
     Dates: start: 20220406, end: 20220420
  41. BUDESONIDE [Concomitant]
     Active Substance: BUDESONIDE
     Route: 055
     Dates: start: 20220407
  42. INSULIN NOS [Concomitant]
     Active Substance: INSULIN NOS
     Dosage: 1 U
     Route: 058
     Dates: start: 20220407, end: 20220420
  43. POTASSIUM CHLORIDE [Concomitant]
     Active Substance: POTASSIUM CHLORIDE
     Dosage: 40 OTHER
     Route: 042
     Dates: start: 20220410, end: 20220420
  44. TEICOPLANIN [Concomitant]
     Active Substance: TEICOPLANIN
     Route: 042
     Dates: start: 20220411, end: 20220418
  45. MICAFUNGIN [Concomitant]
     Active Substance: MICAFUNGIN
     Dates: start: 20220411, end: 20220420
  46. VALGANCICLOVIR [Concomitant]
     Active Substance: VALGANCICLOVIR
     Route: 048
     Dates: start: 20220419
  47. FILGRASTIM [Concomitant]
     Active Substance: FILGRASTIM
     Route: 058
     Dates: start: 20220512, end: 20220517
  48. FILGRASTIM [Concomitant]
     Active Substance: FILGRASTIM
     Route: 058
     Dates: start: 20220519
  49. BISOPROLOL [Concomitant]
     Active Substance: BISOPROLOL
     Route: 048
     Dates: start: 20220519
  50. LEVOFLOXACIN [Concomitant]
     Active Substance: LEVOFLOXACIN
     Route: 048
     Dates: start: 20220503, end: 20220512

REACTIONS (1)
  - Cytomegalovirus infection [Recovered/Resolved]

NARRATIVE: CASE EVENT DATE: 20220406
